FAERS Safety Report 7541079-8 (Version None)
Quarter: 2011Q2

REPORT INFORMATION
  Report Type: 
  Country: None (occurrence: None)
  Receive Date: 20110610
  Receipt Date: 20110601
  Transmission Date: 20111010
  Serious: Yes (Other)
  Sender: FDA-Public Use
  Company Number: ES-ROCHE-780616

PATIENT
  Age: 73 Year
  Sex: Female

DRUGS (2)
  1. XELODA [Suspect]
     Indication: COLON ADENOMA
     Route: 065
     Dates: start: 20101201, end: 20110210
  2. OXALIPLATIN [Suspect]
     Indication: COLON ADENOMA
     Route: 042
     Dates: start: 20101201

REACTIONS (1)
  - GASTROINTESTINAL TOXICITY [None]
